FAERS Safety Report 10367653 (Version 2)
Quarter: 2014Q3

REPORT INFORMATION
  Report Type: Spontaneous
  Country: US (occurrence: US)
  Receive Date: 20140807
  Receipt Date: 20140828
  Transmission Date: 20150326
  Serious: Yes (Life-Threatening, Hospitalization, Other)
  Sender: FDA-Public Use
  Company Number: US-BAYER-2014-117126

PATIENT
  Age: 44 Year
  Sex: Female
  Weight: 71 kg

DRUGS (1)
  1. MIRENA [Suspect]
     Active Substance: LEVONORGESTREL
     Indication: CONTRACEPTION
     Dosage: 20 MCG/24HR, CONT
     Route: 015
     Dates: start: 20111110, end: 20140725

REACTIONS (4)
  - Streptococcus test positive [None]
  - Haemorrhagic ovarian cyst [None]
  - Staphylococcus test positive [None]
  - Toxic shock syndrome [None]

NARRATIVE: CASE EVENT DATE: 20140725
